FAERS Safety Report 25631697 (Version 1)
Quarter: 2025Q3

REPORT INFORMATION
  Report Type: Spontaneous
  Country: US (occurrence: US)
  Receive Date: 20250801
  Receipt Date: 20250801
  Transmission Date: 20251021
  Serious: No
  Sender: BAUSCH AND LOMB
  Company Number: US-BAUSCH-BH-2025-015384

PATIENT

DRUGS (1)
  1. TRETINOIN [Suspect]
     Active Substance: TRETINOIN
     Indication: Scar
     Route: 065
     Dates: start: 202412, end: 202507

REACTIONS (5)
  - Hypoacusis [Recovering/Resolving]
  - Memory impairment [Recovered/Resolved]
  - Headache [Recovered/Resolved]
  - Migraine [Recovering/Resolving]
  - Visual impairment [Recovering/Resolving]

NARRATIVE: CASE EVENT DATE: 20250101
